FAERS Safety Report 12960269 (Version 1)
Quarter: 2016Q4

REPORT INFORMATION
  Report Type: Spontaneous
  Country: JP (occurrence: JP)
  Receive Date: 20161121
  Receipt Date: 20161121
  Transmission Date: 20170207
  Serious: Yes (Death, Hospitalization, Other)
  Sender: FDA-Public Use
  Company Number: JP-BRISTOL-MYERS SQUIBB COMPANY-BMS-2016-098883

PATIENT
  Age: 77 Year
  Sex: Female
  Weight: 69 kg

DRUGS (4)
  1. SULFASALAZINE. [Suspect]
     Active Substance: SULFASALAZINE
     Indication: RHEUMATOID ARTHRITIS
     Dosage: 1000 MG, QD
     Route: 048
     Dates: start: 20111102, end: 20160202
  2. RHEUMATREX [Suspect]
     Active Substance: METHOTREXATE SODIUM
     Indication: PRODUCT USED FOR UNKNOWN INDICATION
     Dosage: 12 MG, QWK
     Route: 048
     Dates: start: 20140826
  3. ORENCIA [Suspect]
     Active Substance: ABATACEPT
     Indication: RHEUMATOID ARTHRITIS
     Dosage: UNK
     Route: 065
     Dates: start: 20141118, end: 20160105
  4. RHEUMATREX [Suspect]
     Active Substance: METHOTREXATE SODIUM
     Indication: RHEUMATOID ARTHRITIS
     Dosage: 10 MG, QWK
     Route: 048
     Dates: start: 20140519, end: 20140826

REACTIONS (4)
  - Depressed level of consciousness [Unknown]
  - Movement disorder [Unknown]
  - Decreased appetite [Unknown]
  - Pneumonia [Fatal]

NARRATIVE: CASE EVENT DATE: 20160112
